FAERS Safety Report 4319388-5 (Version None)
Quarter: 2004Q1

REPORT INFORMATION
  Report Type: 
  Country: None (occurrence: None)
  Receive Date: 20040319
  Receipt Date: 20031202
  Transmission Date: 20041129
  Serious: Yes (Death, Hospitalization)
  Sender: FDA-Public Use
  Company Number: 200320397US

PATIENT
  Sex: Male
  Weight: 80.27 kg

DRUGS (48)
  1. ARAVA [Suspect]
     Route: 048
     Dates: start: 20000128, end: 20020204
  2. PREDNISONE [Concomitant]
  3. PLAQUENIL [Concomitant]
  4. VOLTAREN [Concomitant]
  5. IMURAN [Concomitant]
     Dosage: DOSE: NOT PROVIDED
     Dates: start: 19980301, end: 19991201
  6. FERROUS SULFATE TAB [Concomitant]
  7. CALCIUM WITH VITAMIN D [Concomitant]
  8. GOLD [Concomitant]
     Dosage: DOSE: NOT PROVIDED
     Route: 030
  9. METHOTREXATE [Concomitant]
     Dosage: DOSE: NOT PROVIDED
  10. SULFASALAZINE [Concomitant]
     Dosage: DOSE: NOT PROVIDED
  11. ACIPHEX [Concomitant]
  12. TYLENOL (CAPLET) [Concomitant]
     Dosage: DOSE: NOT PROVIDED
  13. PANTOTHENIC ACID [Concomitant]
  14. HYDROCODONE [Concomitant]
  15. CARAFATE [Concomitant]
  16. L-LYSINE [Concomitant]
     Dosage: DOSE: NOT PROVIDED
  17. MULTIVITAMINS, PLAIN [Concomitant]
     Dosage: DOSE: 1 TABLET
     Route: 048
  18. VIOXX [Concomitant]
  19. FUROSEMIDE [Concomitant]
  20. K-DUR 10 [Concomitant]
  21. VITAMIN E [Concomitant]
     Dosage: DOSE UNIT: UNITS
  22. VITAMIN C [Concomitant]
  23. CYTOXAN [Concomitant]
  24. PREVACID [Concomitant]
     Dosage: DOSE: NOT PROVIDED
  25. DILAUDID [Concomitant]
  26. SUDAFED S.A. [Concomitant]
     Dosage: DOSE: NOT PROVIDED
  27. AUGMENTIN [Concomitant]
     Dates: start: 20010523
  28. ACTONEL [Concomitant]
  29. VITAMIN B5 [Concomitant]
  30. PRILOSEC [Concomitant]
  31. KEFLEX [Concomitant]
     Dates: start: 20020227
  32. CELEBREX [Concomitant]
     Dates: start: 20010710
  33. TPN [Concomitant]
  34. TRANSDERM SCOP [Concomitant]
     Dosage: DOSE: AS DIRECTED
  35. ACETAMINOPHEN AND HYDROCODONE BITARTRATE [Concomitant]
     Dosage: DOSE: 5/500
     Dates: start: 20010622
  36. LEVAQUIN [Concomitant]
     Dates: start: 20010628
  37. ZYRTEC [Concomitant]
     Dates: start: 20010727
  38. BACTRIM DS [Concomitant]
     Dosage: DOSE: 800/160
     Dates: start: 20011026
  39. SSD AF [Concomitant]
     Dosage: DOSE: 1-2 TIMES
     Route: 061
     Dates: start: 20020314
  40. SANTYL [Concomitant]
     Dosage: DOSE UNIT: UNITS
     Dates: start: 20020501
  41. CLINDAMYCIN HCL [Concomitant]
     Route: 048
     Dates: start: 20020607
  42. DIFLUCAN [Concomitant]
     Dates: start: 20020607
  43. ROXICODONE [Concomitant]
     Dates: start: 20020607
  44. SODIUM BICARBONATE [Concomitant]
     Dosage: DOSE UNIT: GRAIN
     Dates: start: 20020607
  45. CHOLESTYRAMINE [Concomitant]
     Dates: start: 20020607
  46. LIDOCAINE [Concomitant]
     Dosage: DOSE: 4%
     Dates: start: 20020611
  47. BACTROBAN [Concomitant]
     Dosage: DOSE: 2%
     Dates: start: 20020607
  48. PREPARATIONS FOR TREATMENT OF WOUNDS + ULCERS [Concomitant]
     Dosage: DOSE: NOT PROVIDED
     Dates: start: 20020614

REACTIONS (30)
  - ASCITES [None]
  - ASTHENIA [None]
  - BACTERAEMIA [None]
  - BACTERIAL INFECTION [None]
  - BLOOD ALBUMIN DECREASED [None]
  - BRAIN OEDEMA [None]
  - CELLULITIS [None]
  - CHOLESTASIS [None]
  - DUODENAL ULCER [None]
  - ENTEROCOCCAL INFECTION [None]
  - FATIGUE [None]
  - GASTROINTESTINAL HAEMORRHAGE [None]
  - HAEMODYNAMIC INSTABILITY [None]
  - HEPATIC CIRRHOSIS [None]
  - HEPATIC FAILURE [None]
  - HEPATIC TRAUMA [None]
  - HYPOTENSION [None]
  - ILEUS [None]
  - KLEBSIELLA INFECTION [None]
  - LIVEDO RETICULARIS [None]
  - LIVER DISORDER [None]
  - PANCREATITIS [None]
  - PLEURAL EFFUSION [None]
  - RECTAL HAEMORRHAGE [None]
  - RENAL FAILURE [None]
  - SEPSIS [None]
  - STAPHYLOCOCCAL INFECTION [None]
  - STENOTROPHOMONAS INFECTION [None]
  - VASCULITIS [None]
  - WOUND SECRETION [None]
